FAERS Safety Report 16275712 (Version 1)
Quarter: 2019Q2

REPORT INFORMATION
  Report Type: Report from Study
  Country: US (occurrence: US)
  Receive Date: 20190504
  Receipt Date: 20190504
  Transmission Date: 20190711
  Serious: Yes (Death, Hospitalization, Other)
  Sender: FDA-Public Use
  Company Number: PHEH2019US018779

PATIENT
  Age: 85 Year
  Sex: Female
  Weight: 64.85 kg

DRUGS (1)
  1. AFINITOR [Suspect]
     Active Substance: EVEROLIMUS
     Indication: PRODUCT USED FOR UNKNOWN INDICATION
     Dosage: UNK
     Route: 065
     Dates: start: 20180727, end: 20181110

REACTIONS (3)
  - Fall [Unknown]
  - Injury [Unknown]
  - Death [Fatal]

NARRATIVE: CASE EVENT DATE: 201811
